FAERS Safety Report 19706344 (Version 1)
Quarter: 2021Q3

REPORT INFORMATION
  Report Type: Report from Study
  Country: UA (occurrence: UA)
  Receive Date: 20210817
  Receipt Date: 20210817
  Transmission Date: 20211014
  Serious: Yes (Hospitalization)
  Sender: FDA-Public Use
  Company Number: UA-VIFOR (INTERNATIONAL) INC.-VIT-2021-05087

PATIENT
  Age: 58 Year
  Sex: Male
  Weight: 92.5 kg

DRUGS (11)
  1. TORASEMID [Concomitant]
     Active Substance: TORSEMIDE
     Indication: CARDIAC FAILURE
     Route: 048
     Dates: start: 20190911
  2. XARELTO [Concomitant]
     Active Substance: RIVAROXABAN
     Indication: ATRIAL FIBRILLATION
     Route: 048
     Dates: start: 20210202
  3. ATEROCARD [Concomitant]
     Indication: MYOCARDIAL ISCHAEMIA
     Route: 048
     Dates: start: 20200302
  4. BLINDED (CLINICAL TRIAL DRUG) [Suspect]
     Active Substance: INVESTIGATIONAL PRODUCT
     Dosage: 1 PACKETS/DAY
     Route: 048
     Dates: start: 20210602
  5. KOVASTIN [Concomitant]
     Indication: MYOCARDIAL ISCHAEMIA
     Route: 048
     Dates: start: 20190527
  6. BLINDED (CLINICAL TRIAL DRUG) [Suspect]
     Active Substance: INVESTIGATIONAL PRODUCT
     Indication: HYPERKALAEMIA
     Dosage: 1 PACKETS/DAY
     Route: 048
     Dates: start: 20210413
  7. UPERIO [Concomitant]
     Active Substance: SACUBITRIL\VALSARTAN
     Indication: CARDIAC FAILURE
     Route: 048
     Dates: start: 20210202
  8. SPIRINOLACTON [Concomitant]
     Indication: CARDIAC FAILURE
     Route: 048
     Dates: start: 20190527, end: 20210322
  9. SPIRINOLACTON [Concomitant]
     Route: 048
     Dates: start: 20210323
  10. CARVEDILOL. [Concomitant]
     Active Substance: CARVEDILOL
     Indication: CARDIAC FAILURE
     Route: 048
     Dates: start: 20210202
  11. XARELTO [Concomitant]
     Active Substance: RIVAROXABAN
     Indication: THROMBOSIS PROPHYLAXIS

REACTIONS (1)
  - Cardiac failure [Recovered/Resolved]

NARRATIVE: CASE EVENT DATE: 20210603
